FAERS Safety Report 19264419 (Version 1)
Quarter: 2021Q2

REPORT INFORMATION
  Report Type: Spontaneous
  Country: US (occurrence: US)
  Receive Date: 20210517
  Receipt Date: 20210517
  Transmission Date: 20210717
  Serious: No
  Sender: FDA-Public Use
  Company Number: None

PATIENT
  Age: 69 Year
  Sex: Male
  Weight: 96 kg

DRUGS (1)
  1. SULFAMETHOXAZOLE/TRIMETHOPRIM (SULFAMETHOAZOLE 800MG/TRIMETHOPRIM 160M [Suspect]
     Active Substance: SULFAMETHOXAZOLE\TRIMETHOPRIM
     Dates: end: 20190110

REACTIONS (3)
  - Hyperkalaemia [None]
  - Hyponatraemia [None]
  - Acute kidney injury [None]

NARRATIVE: CASE EVENT DATE: 20190110
